FAERS Safety Report 5848328-2 (Version None)
Quarter: 2008Q3

REPORT INFORMATION
  Report Type: 
  Country: None (occurrence: None)
  Receive Date: 20080818
  Receipt Date: 20080808
  Transmission Date: 20090109
  Serious: Yes (Hospitalization)
  Sender: FDA-Public Use
  Company Number: JP-MERCK-0808USA02280

PATIENT
  Age: 76 Year
  Sex: Female

DRUGS (3)
  1. FOSAMAX [Suspect]
     Indication: OSTEOPETROSIS
     Route: 048
     Dates: start: 20080727
  2. SELBEX [Concomitant]
     Route: 048
  3. CELECOX [Suspect]
     Route: 048

REACTIONS (1)
  - DRUG ERUPTION [None]
